FAERS Safety Report 26007702 (Version 1)
Quarter: 2025Q4

REPORT INFORMATION
  Report Type: Spontaneous
  Country: EU (occurrence: EU)
  Receive Date: 20251106
  Receipt Date: 20251106
  Transmission Date: 20260117
  Serious: Yes (Other)
  Sender: Harrow Health
  Company Number: NVSC2025GR165684

PATIENT
  Age: 63 Year
  Sex: Female

DRUGS (4)
  1. ILEVRO [Suspect]
     Active Substance: NEPAFENAC
     Indication: Product used for unknown indication
     Dosage: TOPICAL
  2. MAXIDEX [Suspect]
     Active Substance: DEXAMETHASONE
     Dosage: TOPICAL
  3. NEVANAC [Suspect]
     Active Substance: NEPAFENAC
     Dosage: TOPICAL
  4. VIGAMOX [Suspect]
     Active Substance: MOXIFLOXACIN HYDROCHLORIDE
     Dosage: TOPICAL

REACTIONS (2)
  - Corneal epithelium defect [Recovered/Resolved]
  - Dry eye [Recovered/Resolved]
